FAERS Safety Report 10162548 (Version 1)
Quarter: 2014Q2

REPORT INFORMATION
  Report Type: Spontaneous
  Country: US (occurrence: US)
  Receive Date: 20140509
  Receipt Date: 20140509
  Transmission Date: 20141212
  Serious: Yes (Other)
  Sender: FDA-Public Use
  Company Number: US-TEVA-480358USA

PATIENT
  Sex: Female

DRUGS (3)
  1. ACETAMINOPHEN/CODEINE PO4 [Suspect]
     Dosage: 300/60
  2. VENLAFAXINE HYDROCHLORIDE [Concomitant]
  3. TRAZODONE HYDROCHLORIDE [Concomitant]

REACTIONS (1)
  - Coeliac disease [Unknown]
